FAERS Safety Report 5904812-4 (Version None)
Quarter: 2008Q3

REPORT INFORMATION
  Report Type: 
  Country: None (occurrence: None)
  Receive Date: 20080909
  Receipt Date: 20080314
  Transmission Date: 20090109
  Serious: Yes (Other)
  Sender: FDA-Public Use
  Company Number: 163-20785-08030910

PATIENT
  Age: 50 Year
  Sex: Female

DRUGS (6)
  1. THALOMID [Suspect]
     Indication: MULTIPLE MYELOMA
     Dosage: 100 MG, 200 MG, QD, ORAL
     Route: 048
     Dates: start: 20070730, end: 20070822
  2. THALOMID [Suspect]
     Indication: MULTIPLE MYELOMA
     Dosage: 100 MG, 200 MG, QD, ORAL
     Route: 048
     Dates: start: 20070823
  3. DEXAMETHASONE TAB [Concomitant]
  4. ZOMETA [Concomitant]
  5. HYDROCODONE (HYDROCODONE) [Concomitant]
  6. DIOVAN HCT (CO-DIOVAN) [Concomitant]

REACTIONS (1)
  - NEUROPATHY PERIPHERAL [None]
